FAERS Safety Report 9529802 (Version 3)
Quarter: 2013Q4

REPORT INFORMATION
  Report Type: Spontaneous
  Country: US (occurrence: US)
  Receive Date: 20130917
  Receipt Date: 20131227
  Transmission Date: 20140711
  Serious: Yes (Hospitalization, Other)
  Sender: FDA-Public Use
  Company Number: US-TAKEDA-TPA2013A07815

PATIENT
  Sex: 0

DRUGS (11)
  1. ACTOS [Suspect]
     Indication: DIABETES MELLITUS
     Dosage: 15 MG, QD
     Route: 048
     Dates: start: 2004, end: 201112
  2. OMEPRAZOLE [Concomitant]
     Indication: DYSPEPSIA
     Route: 048
  3. PLAVIX [Concomitant]
     Indication: ANTICOAGULANT THERAPY
     Route: 048
     Dates: start: 20110111
  4. VERAPAMIL [Concomitant]
     Indication: HYPERTENSION
     Route: 048
     Dates: start: 2009
  5. CRESTOR [Concomitant]
     Indication: HYPERTENSION
     Route: 048
     Dates: start: 2011
  6. ISOSORBIDE [Concomitant]
     Indication: CHEST PAIN
     Route: 048
     Dates: start: 2010
  7. TOPAMAX [Concomitant]
     Indication: NEUROPATHY PERIPHERAL
     Route: 048
     Dates: start: 2005
  8. HYDROCODONE AND ACETAMINOPHEN [Concomitant]
     Indication: PAIN IN EXTREMITY
     Route: 048
     Dates: start: 2004
  9. AMBIEN [Concomitant]
     Indication: INSOMNIA
     Dosage: 10 MG, QD
     Route: 048
     Dates: start: 2008
  10. LORCET                             /00607101/ [Concomitant]
     Indication: PAIN
     Dosage: 10/650 QID
     Route: 048
     Dates: start: 2004
  11. PRILOSEC                           /00661201/ [Concomitant]
     Indication: GASTROOESOPHAGEAL REFLUX DISEASE
     Dosage: 20 MG, QD
     Route: 048
     Dates: start: 2010

REACTIONS (3)
  - Fall [Recovered/Resolved with Sequelae]
  - Hip fracture [Recovered/Resolved with Sequelae]
  - Somnambulism [Unknown]
